FAERS Safety Report 5644389-4 (Version None)
Quarter: 2008Q1

REPORT INFORMATION
  Report Type: 
  Country: None (occurrence: None)
  Receive Date: 20080229
  Receipt Date: 20080220
  Transmission Date: 20080703
  Serious: Yes (Hospitalization, Disabling, Other)
  Sender: FDA-Public Use
  Company Number: US-ROCHE-387332

PATIENT
  Age: 23 Year
  Sex: Male
  Weight: 66.2 kg

DRUGS (2)
  1. ACCUTANE [Suspect]
     Indication: ACNE
     Route: 048
     Dates: start: 19960614, end: 19960702
  2. ADVIL [Concomitant]
     Indication: HEADACHE
     Route: 048

REACTIONS (21)
  - ANAEMIA [None]
  - ANAL FISTULA [None]
  - BRONCHIAL HYPERREACTIVITY [None]
  - COLITIS [None]
  - COLITIS ULCERATIVE [None]
  - CROHN'S DISEASE [None]
  - DEPRESSION [None]
  - ENTERITIS [None]
  - ENTEROCOLITIS INFECTIOUS [None]
  - GASTROINTESTINAL DISORDER [None]
  - HEPATIC STEATOSIS [None]
  - HERPES SIMPLEX [None]
  - HYPERCHOLESTEROLAEMIA [None]
  - HYPERLIPIDAEMIA [None]
  - INTESTINAL HAEMORRHAGE [None]
  - MULTI-ORGAN DISORDER [None]
  - PLATELET COUNT INCREASED [None]
  - RASH [None]
  - RECTAL HAEMORRHAGE [None]
  - SUICIDAL IDEATION [None]
  - WHITE BLOOD CELL COUNT INCREASED [None]
